FAERS Safety Report 7759129-2 (Version None)
Quarter: 2011Q3

REPORT INFORMATION
  Report Type: 
  Country: None (occurrence: None)
  Receive Date: 20110919
  Receipt Date: 20110914
  Transmission Date: 20111222
  Serious: Yes (Hospitalization, Other)
  Sender: FDA-Public Use
  Company Number: PHHY2011US39960

PATIENT
  Sex: Male
  Weight: 116.55 kg

DRUGS (12)
  1. EXJADE [Suspect]
     Indication: SICKLE CELL ANAEMIA
     Dosage: 2000 MG, QD
     Route: 048
  2. HYDROXYUREA [Concomitant]
     Dosage: 500 MG, QD2SDO
     Route: 048
  3. FOLIC ACID [Concomitant]
     Dosage: 1 MG, QD
     Route: 048
  4. EXJADE [Suspect]
     Indication: IRON OVERLOAD
  5. LORTAB [Concomitant]
     Dosage: 7.5 MG, Q6H
  6. PEPCID [Concomitant]
     Dosage: 20 MG, QD
     Route: 048
  7. COREG [Concomitant]
     Dosage: 6.25 MG, BID
     Route: 048
  8. PLAVIX [Concomitant]
     Dosage: 75 MG, QD
     Route: 048
  9. LISINOPRIL [Concomitant]
  10. ELAVIL [Concomitant]
     Dosage: 2 DF, QHS
  11. AMBIEN [Concomitant]
     Dosage: 10 MG, QHS
     Route: 048
  12. LEVOTHYROXINE SODIUM [Concomitant]
     Dosage: 75 UG, QD
     Route: 048

REACTIONS (10)
  - NAUSEA [None]
  - PAIN [None]
  - ANAEMIA [None]
  - VOMITING [None]
  - ASTHENIA [None]
  - DEHYDRATION [None]
  - URINARY TRACT INFECTION [None]
  - CHOLELITHIASIS [None]
  - RENAL CYST [None]
  - RENAL FAILURE ACUTE [None]
